FAERS Safety Report 9375867 (Version 2)
Quarter: 2013Q3

REPORT INFORMATION
  Report Type: Spontaneous
  Country: FR (occurrence: FR)
  Receive Date: 20130628
  Receipt Date: 20130709
  Transmission Date: 20140515
  Serious: Yes (Hospitalization)
  Sender: FDA-Public Use
  Company Number: FR-ALLERGAN-1309391US

PATIENT
  Age: 6 Year
  Sex: Male

DRUGS (1)
  1. BOTOX [Suspect]
     Indication: SPASTIC DIPLEGIA
     Dosage: 100 UNITS, SINGLE
     Dates: start: 20130304, end: 20130304

REACTIONS (1)
  - Acute lymphocytic leukaemia [Not Recovered/Not Resolved]
